FAERS Safety Report 7700760-8 (Version None)
Quarter: 2011Q3

REPORT INFORMATION
  Report Type: 
  Country: None (occurrence: None)
  Receive Date: 20110822
  Receipt Date: 20110813
  Transmission Date: 20111222
  Serious: No
  Sender: FDA-Public Use
  Company Number: BR-ROCHE-737722

PATIENT
  Sex: Female

DRUGS (2)
  1. ISOTRETINOIN [Suspect]
     Route: 065
     Dates: start: 20100401
  2. YAZ [Suspect]
     Indication: CONTRACEPTION
     Route: 048

REACTIONS (2)
  - PREGNANCY [None]
  - NO ADVERSE EVENT [None]
